FAERS Safety Report 4277597-8 (Version None)
Quarter: 2004Q1

REPORT INFORMATION
  Report Type: 
  Country: None (occurrence: None)
  Receive Date: 20040122
  Receipt Date: 20040115
  Transmission Date: 20041129
  Serious: Yes (Other)
  Sender: FDA-Public Use
  Company Number: WAES 0401USA01348

PATIENT
  Age: 49 Year
  Sex: Female

DRUGS (2)
  1. CUPRIMINE [Suspect]
     Indication: HEPATO-LENTICULAR DEGENERATION
     Route: 048
     Dates: start: 19961201
  2. CUPRIMINE [Suspect]
     Route: 048

REACTIONS (8)
  - BLOOD BLISTER [None]
  - MILIA [None]
  - PURPURA [None]
  - RASH PAPULAR [None]
  - SKIN ATROPHY [None]
  - SKIN DISORDER [None]
  - SKIN FRAGILITY [None]
  - SKIN WRINKLING [None]
